FAERS Safety Report 4930759-6 (Version None)
Quarter: 2006Q1

REPORT INFORMATION
  Report Type: 
  Country: None (occurrence: None)
  Receive Date: 20060302
  Receipt Date: 20051229
  Transmission Date: 20060701
  Serious: Yes (Other)
  Sender: FDA-Public Use
  Company Number: GB-ABBOTT-05P-167-0320917-00

PATIENT
  Age: 21 Year
  Sex: Female

DRUGS (3)
  1. EPILIM CHRONO TABLETS [Suspect]
     Indication: EPILEPSY
     Route: 048
     Dates: start: 20020702
  2. LAMOTRIGINE [Suspect]
     Indication: EPILEPSY
     Route: 065
     Dates: start: 20020211
  3. EUGYNON [Suspect]
     Indication: CONTRACEPTION
     Route: 048
     Dates: start: 20000418, end: 20050515

REACTIONS (2)
  - PLACENTAL DISORDER [None]
  - UNINTENDED PREGNANCY [None]
